FAERS Safety Report 10155792 (Version 1)
Quarter: 2014Q2

REPORT INFORMATION
  Report Type: Spontaneous
  Country: US (occurrence: US)
  Receive Date: 20140506
  Receipt Date: 20140506
  Transmission Date: 20141212
  Serious: Yes (Death)
  Sender: FDA-Public Use
  Company Number: US-BRISTOL-MYERS SQUIBB COMPANY-20687240

PATIENT
  Sex: Female

DRUGS (4)
  1. BYETTA [Suspect]
  2. JANUVIA [Suspect]
  3. JANUMET [Suspect]
  4. VICTOZA [Suspect]

REACTIONS (1)
  - Pancreatic carcinoma [Fatal]
